FAERS Safety Report 25233058 (Version 1)
Quarter: 2025Q2

REPORT INFORMATION
  Report Type: Spontaneous
  Country: JP (occurrence: JP)
  Receive Date: 20250424
  Receipt Date: 20250424
  Transmission Date: 20250716
  Serious: Yes (Hospitalization, Other)
  Sender: GLAXOSMITHKLINE
  Company Number: JP-GSKJP-JP2025JPN045747AA

PATIENT

DRUGS (2)
  1. VALTREX [Suspect]
     Active Substance: VALACYCLOVIR HYDROCHLORIDE
     Indication: Herpes zoster
     Dosage: 3000 MG, QD
  2. LOXOPROFEN SODIUM [Concomitant]
     Active Substance: LOXOPROFEN SODIUM
     Indication: Rib fracture
     Dosage: 180 MG, QD

REACTIONS (8)
  - Nephropathy toxic [Unknown]
  - Acute kidney injury [Unknown]
  - Toxic encephalopathy [Unknown]
  - Renal impairment [Unknown]
  - Renal tubular disorder [Unknown]
  - Urine output decreased [Unknown]
  - Malaise [Recovered/Resolved]
  - Dyslalia [Recovered/Resolved]
